FAERS Safety Report 25279369 (Version 1)
Quarter: 2025Q2

REPORT INFORMATION
  Report Type: Report from Study
  Country: US (occurrence: US)
  Receive Date: 20250507
  Receipt Date: 20250507
  Transmission Date: 20250717
  Serious: Yes (Hospitalization, Other)
  Sender: GILEAD
  Company Number: US-GILEAD-2025-0704332

PATIENT
  Sex: Female

DRUGS (4)
  1. AMBRISENTAN [Suspect]
     Active Substance: AMBRISENTAN
     Indication: Pulmonary arterial hypertension
     Dosage: 10 MG, QD
     Route: 065
     Dates: start: 20250130
  2. SILDENAFIL [Concomitant]
     Active Substance: SILDENAFIL
  3. ELIQUIS [Concomitant]
     Active Substance: APIXABAN
  4. UPTRAVI [Concomitant]
     Active Substance: SELEXIPAG
     Dosage: 200 UG, BID

REACTIONS (11)
  - Pneumonia [Unknown]
  - Dyspnoea [Unknown]
  - Oedema [Unknown]
  - Pulmonary oedema [Unknown]
  - Cough [Unknown]
  - Headache [Unknown]
  - Pyrexia [Unknown]
  - Asthenia [Unknown]
  - Vomiting [Unknown]
  - Peripheral coldness [Unknown]
  - Hypervolaemia [Unknown]
